FAERS Safety Report 10182935 (Version 2)
Quarter: 2014Q2

REPORT INFORMATION
  Report Type: Spontaneous
  Country: US (occurrence: US)
  Receive Date: 20140520
  Receipt Date: 20140625
  Transmission Date: 20141212
  Serious: Yes (Other)
  Sender: FDA-Public Use
  Company Number: US-PFIZER INC-2014136075

PATIENT
  Sex: Male

DRUGS (7)
  1. MORPHINE SULFATE [Suspect]
     Indication: CELLULITIS
     Dosage: 60 MG, 4-6 HOURS, AS NEEDED
     Route: 048
  2. MORPHINE SULFATE [Suspect]
     Indication: SKIN ULCER
  3. OXYCONTIN [Suspect]
     Indication: CELLULITIS
     Dosage: 80 MG, AS NEEDED (4-6 HOURS PRN)
     Route: 048
     Dates: start: 2000
  4. OXYCONTIN [Suspect]
     Indication: NECK INJURY
     Dosage: 80 MG, 4-5 TABLETS PER DAY
     Route: 048
     Dates: start: 201404
  5. OXYCONTIN [Suspect]
     Indication: NECK SURGERY
  6. OXYCONTIN [Suspect]
     Indication: SKIN ULCER
  7. OXYCONTIN [Suspect]
     Indication: PAIN

REACTIONS (6)
  - Poor peripheral circulation [Unknown]
  - Infection [Unknown]
  - Pain in extremity [Unknown]
  - Skin ulcer [Not Recovered/Not Resolved]
  - Pain [Unknown]
  - Inadequate analgesia [Unknown]
